FAERS Safety Report 5274022-5 (Version None)
Quarter: 2007Q1

REPORT INFORMATION
  Report Type: 
  Country: None (occurrence: None)
  Receive Date: 20070323
  Receipt Date: 20070322
  Transmission Date: 20070707
  Serious: Yes (Other)
  Sender: FDA-Public Use
  Company Number: DE-GLAXOSMITHKLINE-D0052713A

PATIENT
  Age: 81 Year
  Sex: Female
  Weight: 64 kg

DRUGS (5)
  1. AVANDAMET [Suspect]
     Dosage: 1004MG UNKNOWN
     Route: 048
     Dates: start: 20050718, end: 20070320
  2. DIGIMERCK [Concomitant]
     Dosage: .05MG PER DAY
     Route: 048
  3. TORSEMIDE [Concomitant]
     Dosage: 20MG THREE TIMES PER DAY
     Route: 048
     Dates: start: 20050101
  4. ALLOPURINOL [Concomitant]
     Dosage: 300MG TWICE PER DAY
     Route: 048
  5. SPIRIVA [Concomitant]
     Dosage: 1PUFF TWICE PER DAY
     Route: 055
     Dates: start: 20050101

REACTIONS (5)
  - CONTUSION [None]
  - FALL [None]
  - RADIUS FRACTURE [None]
  - THORACIC VERTEBRAL FRACTURE [None]
  - UPPER LIMB FRACTURE [None]
